FAERS Safety Report 6838951-0 (Version None)
Quarter: 2010Q3

REPORT INFORMATION
  Report Type: 
  Country: None (occurrence: None)
  Receive Date: 20100713
  Receipt Date: 20070924
  Transmission Date: 20110219
  Serious: No
  Sender: FDA-Public Use
  Company Number: US-PFIZER INC-2007035672

PATIENT
  Sex: Male
  Weight: 94.3 kg

DRUGS (5)
  1. CHANTIX [Suspect]
     Indication: SMOKING CESSATION THERAPY
     Dates: start: 20070420, end: 20070430
  2. DRUG, UNSPECIFIED [Concomitant]
  3. GEODON [Concomitant]
  4. RISPERDAL [Concomitant]
  5. WELLBUTRIN [Concomitant]
     Indication: SMOKING CESSATION THERAPY

REACTIONS (2)
  - OROPHARYNGEAL DISCOMFORT [None]
  - TOBACCO USER [None]
